FAERS Safety Report 15064423 (Version 1)
Quarter: 2018Q2

REPORT INFORMATION
  Report Type: Report from Study
  Country: US (occurrence: US)
  Receive Date: 20180625
  Receipt Date: 20180625
  Transmission Date: 20180711
  Serious: No
  Sender: FDA-Public Use
  Company Number: US-AMGEN-USASL2016074376

PATIENT
  Age: 45 Year
  Sex: Female

DRUGS (1)
  1. REPATHA [Suspect]
     Active Substance: EVOLOCUMAB
     Indication: CARDIAC DISORDER
     Dosage: 140 UNK, Q2WK
     Route: 065
     Dates: start: 201605

REACTIONS (3)
  - Influenza like illness [Unknown]
  - Nasopharyngitis [Unknown]
  - Peripheral swelling [Unknown]
